FAERS Safety Report 16924735 (Version 2)
Quarter: 2020Q1

REPORT INFORMATION
  Report Type: Report from Study
  Country: US (occurrence: US)
  Receive Date: 20191016
  Receipt Date: 20200108
  Transmission Date: 20200409
  Serious: Yes (Hospitalization)
  Sender: FDA-Public Use
  Company Number: US-ROCHE-2437561

PATIENT
  Age: 63 Year
  Sex: Female
  Weight: 70 kg

DRUGS (10)
  1. NACL [Concomitant]
     Active Substance: SODIUM CHLORIDE
     Route: 065
     Dates: start: 20190710
  2. ACYCLOVIR [ACICLOVIR] [Concomitant]
     Active Substance: ACYCLOVIR
     Route: 065
     Dates: start: 20190710
  3. EZETIMIBE. [Concomitant]
     Active Substance: EZETIMIBE
     Route: 065
     Dates: start: 20190710
  4. ONDANSETRON [Concomitant]
     Active Substance: ONDANSETRON
     Route: 065
     Dates: start: 20190710
  5. PREGABALIN. [Concomitant]
     Active Substance: PREGABALIN
     Route: 065
     Dates: start: 20190710
  6. HYDROMORPHONE [Concomitant]
     Active Substance: HYDROMORPHONE
     Route: 065
     Dates: start: 20190710
  7. VENETOCLAX. [Suspect]
     Active Substance: VENETOCLAX
     Indication: B-CELL LYMPHOMA
     Dosage: ON 03/OCT/2019, SHE RECEIVED LAST DOSE OF ORAL VENETOCLAX PRIOR TO THE ONSET OF SERIOUS ADVERSE EVEN
     Route: 048
     Dates: start: 20190730, end: 20191007
  8. OBINUTUZUMAB. [Suspect]
     Active Substance: OBINUTUZUMAB
     Indication: B-CELL LYMPHOMA
     Dosage: ON 25/SEP/2019, SHE RECEIVED LAST DOSE OF INTRAVENOUS OBINUTUZUMAB PRIOR TO THE ONSET OF SERIOUS ADV
     Route: 042
     Dates: start: 20190703
  9. BENDAMUSTINE [Suspect]
     Active Substance: BENDAMUSTINE
     Indication: B-CELL LYMPHOMA
     Dosage: ON 25/SEP/2019, SHE RECEIVED LAST DOSE OF INTRAVENOUS BENDAMUSTIN PRIOR TO THE ONSET OF SERIOUS ADVE
     Route: 042
     Dates: start: 20190703, end: 20190925
  10. ALLOPURINOL. [Concomitant]
     Active Substance: ALLOPURINOL
     Route: 065
     Dates: start: 20190710

REACTIONS (1)
  - Non-cardiac chest pain [Recovered/Resolved]

NARRATIVE: CASE EVENT DATE: 20191007
